FAERS Safety Report 17095658 (Version 1)
Quarter: 2019Q4

REPORT INFORMATION
  Report Type: Spontaneous
  Country: US (occurrence: US)
  Receive Date: 20191201
  Receipt Date: 20191201
  Transmission Date: 20200122
  Serious: No
  Sender: FDA-Public Use
  Company Number: US-VERTEX PHARMACEUTICALS-2017-000419

PATIENT
  Sex: Male

DRUGS (9)
  1. AQUADEKS [Concomitant]
     Active Substance: MINERALS\VITAMINS
  2. ORKAMBI [Suspect]
     Active Substance: IVACAFTOR\LUMACAFTOR
     Dosage: UNK
     Route: 048
     Dates: start: 20180205, end: 20180305
  3. ZOLOFT [Concomitant]
     Active Substance: SERTRALINE HYDROCHLORIDE
  4. OMEPRAZOLE. [Concomitant]
     Active Substance: OMEPRAZOLE
  5. FLUDROCORTISONE [Concomitant]
     Active Substance: FLUDROCORTISONE
  6. ORKAMBI [Suspect]
     Active Substance: IVACAFTOR\LUMACAFTOR
     Dosage: UNK, QD
     Route: 048
  7. ORKAMBI [Suspect]
     Active Substance: IVACAFTOR\LUMACAFTOR
     Indication: CYSTIC FIBROSIS
     Dosage: 2 DF (200-125 MG EACH), BID
     Route: 048
     Dates: start: 20161207, end: 20171212
  8. VITAMIN D [Concomitant]
     Active Substance: VITAMIN D NOS
  9. AZITHROMYCIN ANHYDROUS. [Concomitant]
     Active Substance: AZITHROMYCIN ANHYDROUS

REACTIONS (1)
  - Chest discomfort [Recovered/Resolved]
